FAERS Safety Report 9346915 (Version 1)
Quarter: 2013Q2

REPORT INFORMATION
  Report Type: Report from Study
  Country: MX (occurrence: MX)
  Receive Date: 20130613
  Receipt Date: 20130613
  Transmission Date: 20140414
  Serious: Yes (Other)
  Sender: FDA-Public Use
  Company Number: PHHY2013MX060235

PATIENT
  Age: 63 Year
  Sex: Female

DRUGS (4)
  1. TEGRETOL [Suspect]
     Indication: TRIGEMINAL NEURALGIA
     Dosage: 6 DF, DAILY
     Route: 048
     Dates: start: 200905, end: 201203
  2. TEGRETOL [Suspect]
     Dosage: 3 DF, DAILY
     Route: 048
     Dates: start: 201203
  3. TEGRETOL [Suspect]
     Dosage: 6 DF, PRN (ACCORDING THE SEVERITY OF THE PAIN)
     Route: 048
     Dates: start: 201203
  4. NEURONTIN [Concomitant]
     Indication: TRIGEMINAL NEURALGIA
     Dosage: 3 UKN, DAILY
     Dates: start: 200905

REACTIONS (3)
  - Pain [Unknown]
  - Hypertension [Not Recovered/Not Resolved]
  - Cervix disorder [Not Recovered/Not Resolved]
